FAERS Safety Report 19076393 (Version 1)
Quarter: 2021Q1

REPORT INFORMATION
  Report Type: Report from Study
  Country: US (occurrence: US)
  Receive Date: 20210331
  Receipt Date: 20210331
  Transmission Date: 20210420
  Serious: Yes (Hospitalization)
  Sender: FDA-Public Use
  Company Number: US-BAUSCH-BL-2020-039353

PATIENT
  Age: 66 Year
  Sex: Male
  Weight: 127.12 kg

DRUGS (3)
  1. XIFAXAN [Suspect]
     Active Substance: RIFAXIMIN
     Route: 048
  2. XIFAXAN [Suspect]
     Active Substance: RIFAXIMIN
     Route: 048
  3. XIFAXAN [Suspect]
     Active Substance: RIFAXIMIN
     Indication: PRODUCT USED FOR UNKNOWN INDICATION
     Dosage: TO AN UNKNOWN DATE
     Route: 048
     Dates: start: 2017

REACTIONS (3)
  - Therapy interrupted [Unknown]
  - Hospitalisation [Unknown]
  - Insurance issue [Unknown]

NARRATIVE: CASE EVENT DATE: 202103
